FAERS Safety Report 12504384 (Version 2)
Quarter: 2016Q3

REPORT INFORMATION
  Report Type: Spontaneous
  Country: AT (occurrence: AT)
  Receive Date: 20160628
  Receipt Date: 20160701
  Transmission Date: 20161109
  Serious: Yes (Other)
  Sender: FDA-Public Use
  Company Number: AT-ABBVIE-16P-009-1662223-00

PATIENT
  Age: 80 Year
  Sex: Male

DRUGS (2)
  1. SIXANTONE [Suspect]
     Active Substance: LEUPROLIDE ACETATE
     Dosage: UNK, Q6MONTHS
     Route: 058
     Dates: start: 20120903
  2. SIXANTONE [Suspect]
     Active Substance: LEUPROLIDE ACETATE
     Indication: PROSTATE CANCER
     Dosage: UNK, Q3MONTHS
     Route: 058
     Dates: start: 20110509

REACTIONS (1)
  - Injection site granuloma [Unknown]

NARRATIVE: CASE EVENT DATE: 201508
